FAERS Safety Report 8972291 (Version 2)
Quarter: 2013Q1

REPORT INFORMATION
  Report Type: Spontaneous
  Country: US (occurrence: US)
  Receive Date: 20121218
  Receipt Date: 20130326
  Transmission Date: 20140127
  Serious: Yes (Other)
  Sender: FDA-Public Use
  Company Number: CHPA2012US025108

PATIENT
  Age: 64 Year
  Sex: Female

DRUGS (4)
  1. TRANSDERM SCOP [Suspect]
     Indication: NAUSEA
     Dosage: 1 DF, Q72H
     Route: 062
     Dates: end: 201212
  2. TRANSDERM SCOP [Suspect]
     Dosage: 0.5 DF, Q72H
     Route: 062
     Dates: start: 201212, end: 201212
  3. TRANSDERM SCOP [Suspect]
     Dosage: 1 DF, Q72H
     Route: 062
     Dates: start: 201212
  4. ANTIEMETICS [Concomitant]
     Indication: NAUSEA
     Dosage: UNK, UNK

REACTIONS (5)
  - Rotator cuff syndrome [Recovered/Resolved]
  - Pain in extremity [Recovered/Resolved]
  - Off label use [Unknown]
  - Wrong technique in drug usage process [Unknown]
  - Underdose [Unknown]
